FAERS Safety Report 11336086 (Version 1)
Quarter: 2015Q3

REPORT INFORMATION
  Report Type: Spontaneous
  Country: US (occurrence: US)
  Receive Date: 20150804
  Receipt Date: 20150804
  Transmission Date: 20151125
  Serious: Yes (Death, Hospitalization, Other)
  Sender: FDA-Public Use
  Company Number: PHHY2015US091081

PATIENT
  Age: 35 Year
  Sex: Female

DRUGS (4)
  1. SUNITINIB [Suspect]
     Active Substance: SUNITINIB
     Indication: METASTATIC RENAL CELL CARCINOMA
     Dosage: 37.5 MG, ON A 2 WEEKS ON, 1 WEEK OFF SCHEDULE
     Route: 048
  2. EVEROLIMUS [Suspect]
     Active Substance: EVEROLIMUS
     Indication: METASTATIC RENAL CELL CARCINOMA
     Dosage: 5 MG, QD
     Route: 048
  3. SUNITINIB [Suspect]
     Active Substance: SUNITINIB
     Indication: METASTASES TO BONE
  4. EVEROLIMUS [Suspect]
     Active Substance: EVEROLIMUS
     Indication: METASTASES TO BONE

REACTIONS (14)
  - Toxicity to various agents [Unknown]
  - Mucosal inflammation [Unknown]
  - Ulcer [Unknown]
  - Multi-organ failure [Fatal]
  - Diarrhoea [Unknown]
  - Hypotension [Unknown]
  - Sepsis [Unknown]
  - Septic shock [Fatal]
  - Ischaemic cardiomyopathy [Unknown]
  - Thrombocytopenia [Unknown]
  - Fatigue [Unknown]
  - Acute kidney injury [Unknown]
  - Contusion [Unknown]
  - Pyrexia [Unknown]

NARRATIVE: CASE EVENT DATE: 200812
